FAERS Safety Report 6295394-9 (Version None)
Quarter: 2009Q3

REPORT INFORMATION
  Report Type: 
  Country: None (occurrence: None)
  Receive Date: 20090803
  Receipt Date: 20090724
  Transmission Date: 20100115
  Serious: Yes (Hospitalization, Disabling)
  Sender: FDA-Public Use
  Company Number: JP-ABBOTT-07P-087-0368367-00

PATIENT
  Sex: Male

DRUGS (4)
  1. LEUPLIN SR FOR INJECTION 11.25 MG [Suspect]
     Indication: PROSTATE CANCER STAGE II
     Route: 058
     Dates: start: 20060306, end: 20060821
  2. LEUPLIN SR FOR INJECTION 11.25 MG [Suspect]
     Dates: end: 20061013
  3. CASODEX [Concomitant]
     Indication: PROSTATE CANCER STAGE II
     Route: 048
     Dates: start: 20060306, end: 20060820
  4. MOBIC [Concomitant]
     Indication: BACK PAIN
     Route: 048
     Dates: start: 20060220, end: 20060820

REACTIONS (5)
  - CEREBRAL HAEMORRHAGE [None]
  - DECREASED ACTIVITY [None]
  - GAIT DISTURBANCE [None]
  - SOCIAL AVOIDANT BEHAVIOUR [None]
  - SPINAL COMPRESSION FRACTURE [None]
